FAERS Safety Report 16568160 (Version 1)
Quarter: 2019Q3

REPORT INFORMATION
  Report Type: Spontaneous
  Country: US (occurrence: US)
  Receive Date: 20190712
  Receipt Date: 20190712
  Transmission Date: 20191004
  Serious: No
  Sender: FDA-Public Use
  Company Number: US-BIODELIVERY SCIENCES INTERNATIONAL-2018BDSI0429

PATIENT
  Sex: Female

DRUGS (1)
  1. BUPRENORPHINE/NALOXONE [Suspect]
     Active Substance: BUPRENORPHINE\NALOXONE
     Indication: DRUG DEPENDENCE
     Dosage: 2.1MG/0.3MG
     Route: 002
     Dates: start: 20180727

REACTIONS (3)
  - Product solubility abnormal [Unknown]
  - Product packaging difficult to open [Unknown]
  - Oral administration complication [Unknown]

NARRATIVE: CASE EVENT DATE: 20180727
